FAERS Safety Report 5800343-0 (Version None)
Quarter: 2008Q3

REPORT INFORMATION
  Report Type: 
  Country: None (occurrence: None)
  Receive Date: 20080703
  Receipt Date: 20080624
  Transmission Date: 20090109
  Serious: Yes (Hospitalization)
  Sender: FDA-Public Use
  Company Number: US-ABBOTT-08P-163-0459547-00

PATIENT
  Sex: Female
  Weight: 120.31 kg

DRUGS (6)
  1. HUMIRA [Suspect]
     Indication: RHEUMATOID ARTHRITIS
     Route: 058
     Dates: start: 20030101, end: 20080401
  2. FUROSEMIDE [Concomitant]
     Indication: DRUG USE FOR UNKNOWN INDICATION
     Route: 048
  3. MAGNESIUM OXIDE [Concomitant]
     Indication: DRUG USE FOR UNKNOWN INDICATION
     Route: 048
  4. ACETYLSALICYLIC ACID SRT [Concomitant]
     Indication: DRUG USE FOR UNKNOWN INDICATION
     Route: 048
  5. KLOR-CON [Concomitant]
     Indication: DRUG USE FOR UNKNOWN INDICATION
     Route: 048
  6. METHOTREXATE [Concomitant]
     Indication: RHEUMATOID ARTHRITIS
     Dates: start: 20010101, end: 20080401

REACTIONS (15)
  - CARDIO-RESPIRATORY ARREST [None]
  - DEHYDRATION [None]
  - DIALYSIS [None]
  - DISORIENTATION [None]
  - FEELING ABNORMAL [None]
  - HEPATIC INFECTION FUNGAL [None]
  - HISTOPLASMOSIS [None]
  - INFLUENZA [None]
  - JAUNDICE [None]
  - LOSS OF CONSCIOUSNESS [None]
  - PNEUMONIA FUNGAL [None]
  - PYREXIA [None]
  - RED BLOOD CELL SEDIMENTATION RATE INCREASED [None]
  - RENAL FAILURE [None]
  - SEPSIS [None]
